FAERS Safety Report 7517395-2 (Version None)
Quarter: 2011Q2

REPORT INFORMATION
  Report Type: 
  Country: None (occurrence: None)
  Receive Date: 20110601
  Receipt Date: 20110520
  Transmission Date: 20111010
  Serious: Yes (Death)
  Sender: FDA-Public Use
  Company Number: US-CELGENEUS-163-21880-11052664

PATIENT
  Sex: Male

DRUGS (7)
  1. DEXAMETHASONE [Concomitant]
     Dosage: 4 MILLIGRAM
     Route: 048
  2. PROCHLORPERAZINE TAB [Concomitant]
     Dosage: 25 MILLIGRAM
     Route: 065
  3. REVLIMID [Suspect]
     Indication: MULTIPLE MYELOMA
     Dosage: 25 MILLIGRAM
     Route: 048
     Dates: start: 20110401
  4. PROCHLORPERAZINE TAB [Concomitant]
     Dosage: 10 MILLIGRAM
     Route: 048
  5. TRIAMTERENE AND HYDROCHLOROTHIAZIDE [Concomitant]
     Dosage: 37.5-25
     Route: 048
  6. KLOR-CON [Concomitant]
     Dosage: 20 MILLIEQUIVALENTS
     Route: 048
  7. ASPIRIN [Concomitant]
     Dosage: 81 MILLIGRAM
     Route: 048

REACTIONS (1)
  - DEATH [None]
